FAERS Safety Report 16556579 (Version 1)
Quarter: 2019Q3

REPORT INFORMATION
  Report Type: Other
  Country: KR (occurrence: KR)
  Receive Date: 20190711
  Receipt Date: 20190711
  Transmission Date: 20191004
  Serious: No
  Sender: FDA-Public Use
  Company Number: KR-AGG-10-2018-0989

PATIENT

DRUGS (11)
  1. AGGRASTAT [Suspect]
     Active Substance: TIROFIBAN HYDROCHLORIDE
     Indication: ANTIPLATELET THERAPY
     Dosage: 0.10 MCG/KG/MIN FOR 12H
     Route: 041
  2. ASPIRIN. [Concomitant]
     Active Substance: ASPIRIN
     Dosage: LOADING DOSES
  3. ATROVASTATIN [Concomitant]
     Active Substance: ATORVASTATIN CALCIUM
  4. ENAPRIL [Concomitant]
     Active Substance: ENALAPRIL
  5. CLOPIDOGREL [Concomitant]
     Active Substance: CLOPIDOGREL BISULFATE
     Dosage: LOADING DOSES
  6. HEPARIN [Concomitant]
     Active Substance: HEPARIN SODIUM
     Dosage: 70 U/KG
     Route: 040
  7. NITROGLYCERIN. [Concomitant]
     Active Substance: NITROGLYCERIN
  8. AGGRASTAT [Suspect]
     Active Substance: TIROFIBAN HYDROCHLORIDE
     Indication: ANTIPLATELET THERAPY
     Dosage: 0.4 MCG/KG/MIN FOR 30 MIN
     Route: 042
  9. BISOPROLOL [Concomitant]
     Active Substance: BISOPROLOL
  10. ASPIRIN. [Concomitant]
     Active Substance: ASPIRIN
     Dosage: MAINTENANCE DOSE
  11. CLOPIDOGREL [Concomitant]
     Active Substance: CLOPIDOGREL BISULFATE
     Dosage: MAINTENANCE DOSE

REACTIONS (3)
  - Ecchymosis [Unknown]
  - Rash [Unknown]
  - Chest pain [Unknown]
